FAERS Safety Report 6112687-6 (Version None)
Quarter: 2009Q1

REPORT INFORMATION
  Report Type: 
  Country: None (occurrence: None)
  Receive Date: 20090312
  Receipt Date: 20090302
  Transmission Date: 20090719
  Serious: Yes (Other)
  Sender: FDA-Public Use
  Company Number: AT-PFIZER INC-2009157626

PATIENT

DRUGS (1)
  1. FLUCONAZOLE [Suspect]
     Indication: OESOPHAGEAL DISORDER
     Dosage: UNK
     Route: 042

REACTIONS (2)
  - METAL POISONING [None]
  - NEUROTOXICITY [None]
